FAERS Safety Report 11131262 (Version 1)
Quarter: 2015Q2

REPORT INFORMATION
  Report Type: Spontaneous
  Country: US (occurrence: US)
  Receive Date: 20150522
  Receipt Date: 20150522
  Transmission Date: 20150821
  Serious: Yes (Other)
  Sender: FDA-Public Use
  Company Number: US-ZOGENIX, INC.-2015ZX000029

PATIENT
  Age: 52 Year
  Sex: Female

DRUGS (1)
  1. ZOHYDRO [Suspect]
     Active Substance: HYDROCODONE BITARTRATE
     Indication: PRODUCT USED FOR UNKNOWN INDICATION
     Route: 048
     Dates: start: 20150223

REACTIONS (6)
  - Hypersensitivity [Unknown]
  - Heart rate increased [Unknown]
  - Vomiting [Unknown]
  - Tremor [Unknown]
  - Throat irritation [Unknown]
  - Dyspnoea [Unknown]
